FAERS Safety Report 5216724-2 (Version None)
Quarter: 2007Q1

REPORT INFORMATION
  Report Type: 
  Country: None (occurrence: None)
  Receive Date: 20061130
  Receipt Date: 20060530
  Transmission Date: 20070707
  Serious: Yes (Hospitalization)
  Sender: FDA-Public Use
  Company Number: US200603000307

PATIENT
  Age: 45 Year
  Sex: Male
  Weight: 96.1 kg

DRUGS (15)
  1. ZYPREXA [Suspect]
     Dosage: SEE IMAGE
     Dates: start: 20000301, end: 20000307
  2. ZYPREXA [Suspect]
     Dosage: SEE IMAGE
     Dates: start: 20000307, end: 20000327
  3. ZYPREXA [Suspect]
     Dosage: SEE IMAGE
     Dates: start: 20000401, end: 20010607
  4. ZYPREXA [Suspect]
     Dosage: SEE IMAGE
     Dates: start: 20010701, end: 20010801
  5. ZYPREXA [Suspect]
     Dosage: SEE IMAGE
     Dates: start: 20011201, end: 20020502
  6. ZYPREXA [Suspect]
     Dosage: SEE IMAGE
     Dates: start: 20020501, end: 20021101
  7. ZYPREXA [Suspect]
     Dosage: SEE IMAGE
     Dates: start: 20021101, end: 20030901
  8. ZYPREXA [Suspect]
     Dosage: SEE IMAGE
     Dates: start: 20040101, end: 20041001
  9. PROZAC [Concomitant]
  10. DEPAKOTE [Concomitant]
  11. SEROQUEL [Concomitant]
  12. RISPERIDONE [Concomitant]
  13. GEODON [Concomitant]
  14. TEGRETOL [Concomitant]
  15. TRAZODONE HCL [Concomitant]

REACTIONS (5)
  - CHEST PAIN [None]
  - DIABETES MELLITUS NON-INSULIN-DEPENDENT [None]
  - HYPERGLYCAEMIA [None]
  - OBESITY [None]
  - WEIGHT INCREASED [None]
